FAERS Safety Report 11381128 (Version 1)
Quarter: 2015Q3

REPORT INFORMATION
  Report Type: Spontaneous
  Country: US (occurrence: None)
  Receive Date: 20150813
  Receipt Date: 20150813
  Transmission Date: 20151125
  Serious: No
  Sender: FDA-Public Use
  Company Number: None

PATIENT
  Age: 43 Year
  Sex: Female

DRUGS (5)
  1. BRAVELLE [Suspect]
     Active Substance: FOLLITROPIN\UROFOLLITROPIN
     Indication: INFERTILITY
     Dosage: VARIES 75-450 IU
     Route: 058
     Dates: start: 20150721
  2. CETROTIDE [Concomitant]
     Active Substance: CETRORELIX ACETATE
  3. MENOPUR [Suspect]
     Active Substance: FOLLICLE STIMULATING HORMONE BETA POLYPEPTIDE\LUTROPIN ALFA
     Indication: INFERTILITY
     Dosage: VARIES 75-450 IU
     Route: 058
     Dates: start: 20150721
  4. AZITHROMYCIN [Concomitant]
     Active Substance: AZITHROMYCIN ANHYDROUS
  5. NOVAREL [Concomitant]
     Active Substance: CHORIOGONADOTROPIN ALFA

REACTIONS (2)
  - Pain in extremity [None]
  - Sleep disorder [None]

NARRATIVE: CASE EVENT DATE: 20150731
